FAERS Safety Report 19571347 (Version 1)
Quarter: 2021Q3

REPORT INFORMATION
  Report Type: Spontaneous
  Country: US (occurrence: US)
  Receive Date: 20210715
  Receipt Date: 20210715
  Transmission Date: 20211014
  Serious: Yes (Other)
  Sender: FDA-Public Use
  Company Number: US-009507513-2107USA002384

PATIENT
  Age: 76 Year
  Sex: Male
  Weight: 83.9 kg

DRUGS (1)
  1. KEYTRUDA [Suspect]
     Active Substance: PEMBROLIZUMAB
     Indication: SMALL CELL LUNG CANCER
     Dosage: INFUSION EVERY 3 WEEKS
     Route: 042
     Dates: start: 202002

REACTIONS (7)
  - Paranasal sinus hypersecretion [Not Recovered/Not Resolved]
  - Ear swelling [Not Recovered/Not Resolved]
  - Brain oedema [Not Recovered/Not Resolved]
  - Swelling [Not Recovered/Not Resolved]
  - Hypoaesthesia [Not Recovered/Not Resolved]
  - Headache [Not Recovered/Not Resolved]
  - Eustachian tube obstruction [Not Recovered/Not Resolved]

NARRATIVE: CASE EVENT DATE: 20210617
